FAERS Safety Report 17488320 (Version 1)
Quarter: 2020Q1

REPORT INFORMATION
  Report Type: Spontaneous
  Country: US (occurrence: US)
  Receive Date: 20200302
  Receipt Date: 20200302
  Transmission Date: 20200409
  Serious: Yes (Other)
  Sender: FDA-Public Use
  Company Number: None

PATIENT
  Age: 42 Year
  Sex: Male
  Weight: 85.5 kg

DRUGS (3)
  1. ICY HOT MEDICATED NO MESS APPLICATOR [Suspect]
     Active Substance: MENTHOL
     Indication: NECK PAIN
     Dosage: ?          QUANTITY:3 ROLL ON;?
     Route: 061
     Dates: start: 20200302, end: 20200302
  2. ICY HOT MEDICATED NO MESS APPLICATOR [Suspect]
     Active Substance: MENTHOL
     Indication: MUSCULOSKELETAL PAIN
     Dosage: ?          QUANTITY:3 ROLL ON;?
     Route: 061
     Dates: start: 20200302, end: 20200302
  3. IBUPROFEN. [Concomitant]
     Active Substance: IBUPROFEN

REACTIONS (2)
  - Skin burning sensation [None]
  - Erythema [None]

NARRATIVE: CASE EVENT DATE: 20200302
